FAERS Safety Report 6844798-1 (Version None)
Quarter: 2010Q3

REPORT INFORMATION
  Report Type: 
  Country: None (occurrence: None)
  Receive Date: 20100715
  Receipt Date: 20100706
  Transmission Date: 20110219
  Serious: Yes (Other)
  Sender: FDA-Public Use
  Company Number: US-JNJCH-2010016111

PATIENT
  Age: 86 Year
  Sex: Female

DRUGS (1)
  1. CALADRYL [Suspect]
     Indication: EXPOSURE TO TOXIC AGENT
     Dosage: TEXT:UNKNOWN
     Route: 061

REACTIONS (1)
  - BLOOD GLUCOSE INCREASED [None]
